FAERS Safety Report 7417455-0 (Version None)
Quarter: 2011Q2

REPORT INFORMATION
  Report Type: 
  Country: None (occurrence: None)
  Receive Date: 20110412
  Receipt Date: 20110412
  Transmission Date: 20111010
  Serious: No
  Sender: FDA-Public Use
  Company Number: None

PATIENT
  Sex: Male
  Weight: 72.5755 kg

DRUGS (1)
  1. RAPAFLO [Suspect]
     Indication: PROSTATOMEGALY
     Dosage: 1 P. D.
     Dates: start: 20110313, end: 20110323

REACTIONS (4)
  - INITIAL INSOMNIA [None]
  - ABDOMINAL PAIN UPPER [None]
  - LOSS OF CONSCIOUSNESS [None]
  - DIZZINESS [None]
